FAERS Safety Report 21411101 (Version 1)
Quarter: 2022Q4

REPORT INFORMATION
  Report Type: Spontaneous
  Country: US (occurrence: US)
  Receive Date: 20221005
  Receipt Date: 20221005
  Transmission Date: 20230112
  Serious: Yes (Other)
  Sender: FDA-Public Use
  Company Number: US-JNJFOC-20220955087

PATIENT
  Age: 5 Decade
  Sex: Female

DRUGS (1)
  1. BALVERSA [Suspect]
     Active Substance: ERDAFITINIB
     Indication: Neuroendocrine carcinoma
     Route: 048

REACTIONS (1)
  - Pancreatitis [Recovered/Resolved]
